FAERS Safety Report 18912232 (Version 1)
Quarter: 2021Q1

REPORT INFORMATION
  Report Type: Report from Study
  Country: None (occurrence: US)
  Receive Date: 20210219
  Receipt Date: 20210219
  Transmission Date: 20210420
  Serious: Yes (Hospitalization)
  Sender: FDA-Public Use
  Company Number: US-ABBVIE-21K-163-3773205-00

PATIENT
  Sex: Male

DRUGS (1)
  1. HUMIRA [Suspect]
     Active Substance: ADALIMUMAB
     Indication: PRODUCT USED FOR UNKNOWN INDICATION
     Route: 058

REACTIONS (7)
  - Asthenia [Recovering/Resolving]
  - Blood potassium decreased [Recovering/Resolving]
  - Heart rate increased [Recovering/Resolving]
  - Decreased appetite [Recovering/Resolving]
  - Vision blurred [Not Recovered/Not Resolved]
  - Peripheral swelling [Recovering/Resolving]
  - Fall [Unknown]

NARRATIVE: CASE EVENT DATE: 2021
